FAERS Safety Report 23558125 (Version 1)
Quarter: 2024Q1

REPORT INFORMATION
  Report Type: Spontaneous
  Country: DK (occurrence: DK)
  Receive Date: 20240223
  Receipt Date: 20240223
  Transmission Date: 20240409
  Serious: Yes (Hospitalization)
  Sender: FDA-Public Use
  Company Number: None

PATIENT
  Age: 55 Year
  Sex: Female

DRUGS (21)
  1. PEMETREXED [Suspect]
     Active Substance: PEMETREXED
     Indication: Non-small cell lung cancer
     Dosage: DOSAGE: 800 MG WITH UNKNOWN INTERVAL. DECREASED FROM 1000-800 MG AT UNKNOWN DATE. STRENGTH: UNKNOWN.
     Route: 042
     Dates: start: 202304
  2. ATORVASTATIN [Concomitant]
     Active Substance: ATORVASTATIN
     Indication: Hypercholesterolaemia
     Route: 065
     Dates: start: 20190731
  3. Betolvex [Concomitant]
     Indication: Vitamin B12 deficiency
     Route: 065
     Dates: start: 20210114
  4. BISOPROLOL [Concomitant]
     Active Substance: BISOPROLOL\BISOPROLOL FUMARATE
     Indication: Hypertension
     Route: 065
     Dates: start: 20170315
  5. HYDROCORTISONE\MICONAZOLE [Concomitant]
     Active Substance: HYDROCORTISONE\MICONAZOLE
     Indication: Oral fungal infection
     Route: 065
     Dates: start: 20230417
  6. Corodil [Concomitant]
     Indication: Hypertension
     Route: 065
     Dates: start: 20120507
  7. Corodil [Concomitant]
     Indication: Hypertension
     Route: 065
     Dates: start: 20210114
  8. LEVOTHYROXINE [Concomitant]
     Active Substance: LEVOTHYROXINE\LEVOTHYROXINE SODIUM
     Indication: Hypothyroidism
     Route: 065
     Dates: start: 20230615
  9. FLUCONAZOLE [Concomitant]
     Active Substance: FLUCONAZOLE
     Indication: Candida infection
     Route: 065
     Dates: start: 20230417
  10. FOLIC ACID [Concomitant]
     Active Substance: FOLIC ACID
     Indication: Chemotherapy side effect prophylaxis
     Route: 065
     Dates: start: 20230404
  11. GABAPENTIN [Concomitant]
     Active Substance: GABAPENTIN
     Indication: Pain
     Route: 065
     Dates: start: 20170818
  12. LANTUS SOLOSTAR [Concomitant]
     Active Substance: INSULIN GLARGINE
     Indication: Type 2 diabetes mellitus
     Route: 065
     Dates: start: 20210612
  13. LOPID [Concomitant]
     Active Substance: GEMFIBROZIL
     Indication: Hypercholesterolaemia
     Route: 065
     Dates: start: 20210608
  14. Morfin [Concomitant]
     Indication: Pain
     Route: 065
     Dates: start: 20230512
  15. NOVORAPID [Concomitant]
     Active Substance: INSULIN ASPART
     Indication: Type 2 diabetes mellitus
     Route: 065
     Dates: start: 20231020
  16. OXAZEPAM [Concomitant]
     Active Substance: OXAZEPAM
     Indication: Sedative therapy
     Route: 065
     Dates: start: 20230118
  17. OZEMPIC [Concomitant]
     Active Substance: SEMAGLUTIDE
     Indication: Type 2 diabetes mellitus
     Route: 065
     Dates: start: 20200610
  18. PANTOPRAZOLE SODIUM [Concomitant]
     Active Substance: PANTOPRAZOLE SODIUM
     Indication: Gastric ulcer
     Route: 065
     Dates: start: 20210819
  19. PAROXETINE HYDROCHLORIDE [Concomitant]
     Active Substance: PAROXETINE HYDROCHLORIDE\PAROXETINE HYDROCHLORIDE ANHYDROUS
     Indication: Anxiety
     Route: 065
     Dates: start: 20210608
  20. Pinex [Concomitant]
     Indication: Pain
     Route: 065
     Dates: start: 20210608
  21. XIGDUO XR [Concomitant]
     Active Substance: DAPAGLIFLOZIN PROPANEDIOL\METFORMIN HYDROCHLORIDE
     Indication: Type 2 diabetes mellitus
     Route: 065
     Dates: start: 20200131

REACTIONS (7)
  - C-reactive protein increased [Not Recovered/Not Resolved]
  - Infection [Not Recovered/Not Resolved]
  - Constipation [Not Recovered/Not Resolved]
  - Neutropenia [Not Recovered/Not Resolved]
  - Leukopenia [Not Recovered/Not Resolved]
  - Abdominal pain [Not Recovered/Not Resolved]
  - Pyrexia [Not Recovered/Not Resolved]

NARRATIVE: CASE EVENT DATE: 20231210
